FAERS Safety Report 25102386 (Version 1)
Quarter: 2025Q1

REPORT INFORMATION
  Report Type: Report from Study
  Country: DE (occurrence: DE)
  Receive Date: 20250320
  Receipt Date: 20250320
  Transmission Date: 20250409
  Serious: Yes (Hospitalization, Other)
  Sender: ABBVIE
  Company Number: DE-ABBVIE-6184313

PATIENT
  Age: 57 Year
  Sex: Female

DRUGS (1)
  1. RINVOQ [Suspect]
     Active Substance: UPADACITINIB
     Indication: Rheumatoid arthritis
     Route: 048
     Dates: start: 20210112, end: 202501

REACTIONS (4)
  - Spinal operation [Recovered/Resolved with Sequelae]
  - Circulatory collapse [Recovered/Resolved]
  - Impaired healing [Recovered/Resolved with Sequelae]
  - Pneumonia [Recovering/Resolving]

NARRATIVE: CASE EVENT DATE: 20250101
